FAERS Safety Report 23099987 (Version 1)
Quarter: 2023Q4

REPORT INFORMATION
  Report Type: Spontaneous
  Country: US (occurrence: None)
  Receive Date: 20231023
  Receipt Date: 20231023
  Transmission Date: 20240110
  Serious: Yes (Other)
  Sender: FDA-Public Use
  Company Number: None

PATIENT
  Age: 76 Year
  Sex: Female
  Weight: 124.65 kg

DRUGS (1)
  1. TRULICITY [Suspect]
     Active Substance: DULAGLUTIDE
     Indication: Diabetes mellitus

REACTIONS (5)
  - Ileus paralytic [None]
  - Infrequent bowel movements [None]
  - Gastrooesophageal reflux disease [None]
  - Abdominal pain upper [None]
  - Thyroid mass [None]

NARRATIVE: CASE EVENT DATE: 20230925
